FAERS Safety Report 6474833-4 (Version None)
Quarter: 2009Q4

REPORT INFORMATION
  Report Type: 
  Country: None (occurrence: None)
  Receive Date: 20091204
  Receipt Date: 20090511
  Transmission Date: 20100525
  Serious: Yes (Hospitalization)
  Sender: FDA-Public Use
  Company Number: US-ELI_LILLY_AND_COMPANY-US200902004489

PATIENT
  Sex: Female
  Weight: 99.773 kg

DRUGS (7)
  1. BYETTA [Suspect]
     Indication: DIABETES MELLITUS
     Dosage: 5 UG, 2/D
     Dates: start: 20080312, end: 20080928
  2. ADVAIR DISKUS 100/50 [Concomitant]
  3. LEXAPRO [Concomitant]
  4. ASPIRIN [Concomitant]
  5. PRILOSEC [Concomitant]
  6. METFORMIN HCL [Concomitant]
  7. PREVACID [Concomitant]

REACTIONS (5)
  - DIARRHOEA [None]
  - DIZZINESS [None]
  - HYPERHIDROSIS [None]
  - PANCREATITIS [None]
  - TREMOR [None]
